FAERS Safety Report 8805058 (Version 1)
Quarter: 2012Q4

REPORT INFORMATION
  Report Type: 
  Country: US (occurrence: US)
  Receive Date: 20120924
  Receipt Date: 20120924
  Transmission Date: 20130627
  Serious: Yes (Other)
  Sender: FDA-Public Use
  Company Number: CHPA2012US019916

PATIENT
  Age: 72 Year
  Sex: Male

DRUGS (2)
  1. MYOFLEX ANALGESIC CREME [Suspect]
     Indication: PAIN
     Dosage: UNK, UNK
     Route: 061
  2. DRUG THERAPY NOS [Concomitant]

REACTIONS (1)
  - Hip fracture [Not Recovered/Not Resolved]
